FAERS Safety Report 5005915-1 (Version None)
Quarter: 2006Q2

REPORT INFORMATION
  Report Type: 
  Country: None (occurrence: None)
  Receive Date: 20060517
  Receipt Date: 20060517
  Transmission Date: 20061013
  Serious: Yes (Life-Threatening, Hospitalization)
  Sender: FDA-Public Use
  Company Number: None

PATIENT
  Sex: Male
  Weight: 79.3795 kg

DRUGS (1)
  1. CHLORASEPTIC LOZENGES [Suspect]
     Dosage: 4 TABS
     Dates: start: 20060325

REACTIONS (7)
  - ABSCESS [None]
  - DROOLING [None]
  - DRUG HYPERSENSITIVITY [None]
  - SPEECH DISORDER [None]
  - SWELLING FACE [None]
  - SWOLLEN TONGUE [None]
  - TONGUE DISORDER [None]
